FAERS Safety Report 7087838-X (Version None)
Quarter: 2010Q4

REPORT INFORMATION
  Report Type: 
  Country: None (occurrence: None)
  Receive Date: 20101108
  Receipt Date: 20101025
  Transmission Date: 20110411
  Serious: No
  Sender: FDA-Public Use
  Company Number: US-JNJFOC-20101007496

PATIENT
  Sex: Male
  Weight: 124.74 kg

DRUGS (6)
  1. SANDOZ FENTANYL TRANSDERMAL SYSTEM [Suspect]
     Indication: PAIN
     Route: 062
  2. SOMA [Concomitant]
     Indication: INTERVERTEBRAL DISC PROTRUSION
     Route: 048
  3. PERCOCET [Concomitant]
     Indication: BACK PAIN
     Dosage: 10-325 MG
     Route: 048
  4. XANAX [Concomitant]
     Dosage: 4-6 HOURS AS NEEDED
     Route: 048
  5. AMBIEN CR [Concomitant]
     Route: 048
  6. IBUPROFEN [Concomitant]
     Indication: BACK PAIN
     Route: 048

REACTIONS (1)
  - WRONG TECHNIQUE IN DRUG USAGE PROCESS [None]
